FAERS Safety Report 4391680-8 (Version None)
Quarter: 2004Q3

REPORT INFORMATION
  Report Type: 
  Country: None (occurrence: None)
  Receive Date: 20040702
  Receipt Date: 20040402
  Transmission Date: 20050211
  Serious: Yes (Other)
  Sender: FDA-Public Use
  Company Number: 2004UW06587

PATIENT
  Age: 57 Year
  Sex: Female
  Weight: 76.6579 kg

DRUGS (3)
  1. CRESTOR [Suspect]
     Indication: BLOOD CHOLESTEROL INCREASED
     Dosage: 10 MG QD PO
     Route: 048
     Dates: start: 20040201
  2. NORVASC [Concomitant]
  3. ESTROGEN [Concomitant]

REACTIONS (1)
  - WEIGHT INCREASED [None]
